FAERS Safety Report 5062546-5 (Version None)
Quarter: 2006Q3

REPORT INFORMATION
  Report Type: 
  Country: None (occurrence: None)
  Receive Date: 20060721
  Receipt Date: 20060704
  Transmission Date: 20061208
  Serious: Yes (Hospitalization)
  Sender: FDA-Public Use
  Company Number: RU200607000214

PATIENT
  Sex: Male

DRUGS (1)
  1. GEMZAR [Suspect]
     Dosage: OTHER

REACTIONS (1)
  - THROMBOSIS [None]
